APPROVED DRUG PRODUCT: CETIRIZINE HYDROCHLORIDE HIVES
Active Ingredient: CETIRIZINE HYDROCHLORIDE
Strength: 5MG
Dosage Form/Route: TABLET;ORAL
Application: A077498 | Product #003
Applicant: SUN PHARMACEUTICAL INDUSTRIES LTD
Approved: Dec 27, 2007 | RLD: No | RS: No | Type: OTC